FAERS Safety Report 9572402 (Version 3)
Quarter: 2013Q4

REPORT INFORMATION
  Report Type: Spontaneous
  Country: US (occurrence: US)
  Receive Date: 20131001
  Receipt Date: 20131206
  Transmission Date: 20140711
  Serious: Yes (Hospitalization)
  Sender: FDA-Public Use
  Company Number: US-JNJFOC-20130916934

PATIENT
  Age: 61 Year
  Sex: Female
  Weight: 73.94 kg

DRUGS (4)
  1. XARELTO [Suspect]
     Indication: KNEE ARTHROPLASTY
     Route: 048
     Dates: start: 20130909, end: 20130919
  2. XARELTO [Suspect]
     Indication: THROMBOSIS PROPHYLAXIS
     Route: 048
     Dates: start: 20130909, end: 20130919
  3. XARELTO [Suspect]
     Indication: DEEP VEIN THROMBOSIS
     Route: 048
     Dates: start: 20130909, end: 20130919
  4. METHOTREXATE [Suspect]
     Indication: IMMUNOSUPPRESSION
     Dosage: EVERY 7 DAYS
     Route: 048

REACTIONS (5)
  - Pulmonary embolism [Recovering/Resolving]
  - Anaemia postoperative [Unknown]
  - Hepatic enzyme increased [Recovering/Resolving]
  - Constipation [Unknown]
  - Pain in extremity [Unknown]
